FAERS Safety Report 24316174 (Version 1)
Quarter: 2024Q3

REPORT INFORMATION
  Report Type: Report from Study
  Country: ES (occurrence: ES)
  Receive Date: 20240913
  Receipt Date: 20240913
  Transmission Date: 20241016
  Serious: Yes (Other)
  Sender: BAYER
  Company Number: ES-BAYER-2024A129919

PATIENT
  Age: 51 Year
  Sex: Male

DRUGS (2)
  1. NAPROXEN [Suspect]
     Active Substance: NAPROXEN
  2. AMOXICILLIN\CLAVULANATE POTASSIUM [Suspect]
     Active Substance: AMOXICILLIN\CLAVULANATE POTASSIUM

REACTIONS (1)
  - Drug-induced liver injury [Recovering/Resolving]
